FAERS Safety Report 6975480-8 (Version None)
Quarter: 2010Q3

REPORT INFORMATION
  Report Type: 
  Country: None (occurrence: None)
  Receive Date: 20100910
  Receipt Date: 20100830
  Transmission Date: 20110219
  Serious: No
  Sender: FDA-Public Use
  Company Number: US-BAYER-201022588NA

PATIENT
  Sex: Female

DRUGS (1)
  1. MIRENA [Suspect]
     Indication: PRODUCT USED FOR UNKNOWN INDICATION
     Dosage: FREQUENCY CONTINUOUS
     Route: 015
     Dates: start: 20080409, end: 20100801

REACTIONS (5)
  - ABNORMAL WITHDRAWAL BLEEDING [None]
  - AMENORRHOEA [None]
  - DEVICE DISLOCATION [None]
  - UTERINE CERVICAL PAIN [None]
  - VAGINAL HAEMORRHAGE [None]
